FAERS Safety Report 6427100-9 (Version None)
Quarter: 2009Q4

REPORT INFORMATION
  Report Type: 
  Country: None (occurrence: None)
  Receive Date: 20091026
  Receipt Date: 20090626
  Transmission Date: 20100525
  Serious: No
  Sender: FDA-Public Use
  Company Number: FPI-09-FIR-0185

PATIENT
  Sex: Male

DRUGS (1)
  1. FIRMAGON [Suspect]
     Indication: PROSTATE CANCER
     Dosage: 240MG ; 80MG

REACTIONS (5)
  - CHILLS [None]
  - INJECTION SITE REACTION [None]
  - INJECTION SITE SWELLING [None]
  - ORAL HERPES [None]
  - PYREXIA [None]
